FAERS Safety Report 8191612-0 (Version None)
Quarter: 2012Q1

REPORT INFORMATION
  Report Type: 
  Country: None (occurrence: None)
  Receive Date: 20120221
  Receipt Date: 20111103
  Transmission Date: 20120608
  Serious: No
  Sender: FDA-Public Use
  Company Number: 044828

PATIENT

DRUGS (3)
  1. KEPPRA [Suspect]
  2. PHENYTOIN [Concomitant]
  3. LACOSAMIDE [Suspect]

REACTIONS (2)
  - DIZZINESS [None]
  - BALANCE DISORDER [None]
